FAERS Safety Report 9540429 (Version 1)
Quarter: 2013Q3

REPORT INFORMATION
  Report Type: Spontaneous
  Country: FR (occurrence: FR)
  Receive Date: 20130920
  Receipt Date: 20130920
  Transmission Date: 20140515
  Serious: Yes (Other)
  Sender: FDA-Public Use
  Company Number: FR-GLAXOSMITHKLINE-B0856746A

PATIENT
  Age: 5 Year
  Sex: Male

DRUGS (4)
  1. FONDAPARINUX [Suspect]
     Indication: COAGULOPATHY
     Dosage: 2MG PER DAY
     Route: 065
  2. ENOXAPARIN [Concomitant]
     Indication: COAGULOPATHY
     Dosage: 100IU PER DAY
     Route: 065
  3. PARACETAMOL [Concomitant]
     Indication: PAIN
     Dosage: 200MGD PER DAY
     Route: 048
  4. CODEIN [Concomitant]
     Indication: PAIN
     Dosage: .6MLK PER DAY
     Route: 065

REACTIONS (8)
  - Hepatotoxicity [Recovered/Resolved]
  - Hepatitis [Recovered/Resolved]
  - Vomiting [Recovered/Resolved]
  - Alanine aminotransferase increased [Recovered/Resolved]
  - Aspartate aminotransferase increased [Recovered/Resolved]
  - Gamma-glutamyltransferase increased [Recovered/Resolved]
  - Thrombosis [Unknown]
  - Nausea [Recovered/Resolved]
